FAERS Safety Report 21319838 (Version 3)
Quarter: 2023Q2

REPORT INFORMATION
  Report Type: Spontaneous
  Country: US (occurrence: US)
  Receive Date: 20220911
  Receipt Date: 20230427
  Transmission Date: 20230722
  Serious: No
  Sender: FDA-Public Use
  Company Number: US-SA-SAC20220906000209

PATIENT
  Age: 67 Year
  Sex: Female

DRUGS (1)
  1. DUPIXENT [Suspect]
     Active Substance: DUPILUMAB
     Indication: Dermatitis atopic
     Dosage: 300 MG, QOW
     Route: 058
     Dates: start: 20220809

REACTIONS (9)
  - Emotional disorder [Unknown]
  - Depression [Unknown]
  - Gastrointestinal disorder [Unknown]
  - Poor quality sleep [Unknown]
  - Photopsia [Unknown]
  - Eye irritation [Unknown]
  - Arthralgia [Unknown]
  - Abdominal pain lower [Not Recovered/Not Resolved]
  - Visual impairment [Unknown]
